FAERS Safety Report 21625747 (Version 5)
Quarter: 2023Q2

REPORT INFORMATION
  Report Type: Report from Study
  Country: JP (occurrence: JP)
  Receive Date: 20221122
  Receipt Date: 20230619
  Transmission Date: 20230722
  Serious: Yes (Life-Threatening)
  Sender: FDA-Public Use
  Company Number: JP-ARGENX-2022-ARGX-JP001826

PATIENT
  Age: 65 Year
  Sex: Female
  Weight: 54.6 kg

DRUGS (3)
  1. VYVGART [Suspect]
     Active Substance: EFGARTIGIMOD ALFA-FCAB
     Indication: Myasthenia gravis
     Dosage: 546 MG, 1/WEEK
     Route: 041
     Dates: start: 20220830, end: 20220920
  2. PREDNISOLONE [Concomitant]
     Active Substance: PREDNISOLONE
     Indication: Myasthenia gravis
     Dosage: 4 MG
     Route: 048
     Dates: start: 20210428, end: 20221024
  3. PREDNISOLONE [Concomitant]
     Active Substance: PREDNISOLONE
     Dosage: 5 MG
     Route: 048
     Dates: start: 20221025

REACTIONS (8)
  - Lymphoproliferative disorder [Unknown]
  - Gonococcal infection [Recovered/Resolved]
  - Vasculitis [Recovered/Resolved]
  - Symptom recurrence [Recovering/Resolving]
  - Paraesthesia [Recovered/Resolved]
  - Myalgia [Recovered/Resolved]
  - Incorrect product administration duration [Unknown]
  - Drug ineffective [Unknown]

NARRATIVE: CASE EVENT DATE: 20220830
